FAERS Safety Report 9705810 (Version 2)
Quarter: 2013Q4

REPORT INFORMATION
  Report Type: Spontaneous
  Country: US (occurrence: US)
  Receive Date: 20131122
  Receipt Date: 20131122
  Transmission Date: 20140711
  Serious: No
  Sender: FDA-Public Use
  Company Number: US-GILEAD-2008-0017833

PATIENT
  Sex: Female

DRUGS (10)
  1. LETAIRIS [Suspect]
     Indication: PULMONARY ARTERIAL HYPERTENSION
     Route: 048
     Dates: start: 20070918
  2. METOPROLOL ER [Concomitant]
  3. ASPIRIN [Concomitant]
     Route: 048
  4. PRAVASTATIN [Concomitant]
     Route: 048
  5. TORSEMIDE [Concomitant]
     Route: 048
  6. ACTOS [Concomitant]
     Route: 048
  7. GLIPIZIDE ER [Concomitant]
     Route: 048
  8. NASONEX [Concomitant]
     Route: 045
  9. LEVOXYL [Concomitant]
     Route: 048
  10. ONDANSETRON [Concomitant]
     Route: 048

REACTIONS (3)
  - Upper respiratory tract congestion [Not Recovered/Not Resolved]
  - Constipation [Not Recovered/Not Resolved]
  - Headache [Not Recovered/Not Resolved]
